FAERS Safety Report 8460411-4 (Version None)
Quarter: 2012Q2

REPORT INFORMATION
  Report Type: 
  Country: None (occurrence: None)
  Receive Date: 20120622
  Receipt Date: 20120615
  Transmission Date: 20120825
  Serious: Yes (Life-Threatening)
  Sender: FDA-Public Use
  Company Number: JP-ASTRAZENECA-2012SE30238

PATIENT
  Age: 67 Year
  Sex: Female

DRUGS (13)
  1. MEROPENEM [Suspect]
     Indication: MENINGITIS
     Route: 042
     Dates: start: 20120117, end: 20120216
  2. MEROPENEM [Suspect]
     Route: 042
     Dates: start: 20120427, end: 20120506
  3. MEROPENEM [Suspect]
     Route: 042
     Dates: start: 20120411, end: 20120420
  4. AMBISOME [Suspect]
     Route: 065
     Dates: start: 20120425, end: 20120504
  5. VANCOMYCIN HYDROCHLORIDE [Suspect]
     Route: 065
     Dates: start: 20120309, end: 20120409
  6. MEROPENEM [Suspect]
     Route: 042
     Dates: start: 20120427, end: 20120506
  7. VANCOMYCIN HYDROCHLORIDE [Suspect]
     Route: 065
     Dates: start: 20120206, end: 20120215
  8. PRODIF [Suspect]
     Route: 042
  9. MEROPENEM [Suspect]
     Route: 042
     Dates: start: 20120411, end: 20120420
  10. VANCOMYCIN HYDROCHLORIDE [Suspect]
     Route: 065
     Dates: start: 20120427
  11. BUPRENORPHINE HCL [Suspect]
     Route: 065
  12. CLINDAMYCIN PHOSPHATE [Suspect]
     Route: 065
     Dates: start: 20120411, end: 20120506
  13. MEROPENEM [Suspect]
     Indication: PSOAS ABSCESS
     Route: 042
     Dates: start: 20120117, end: 20120216

REACTIONS (2)
  - TOXIC EPIDERMAL NECROLYSIS [None]
  - DRUG ERUPTION [None]
